FAERS Safety Report 4404244-4 (Version None)
Quarter: 2004Q3

REPORT INFORMATION
  Report Type: 
  Country: None (occurrence: None)
  Receive Date: 20040721
  Receipt Date: 20040721
  Transmission Date: 20050211
  Serious: Yes (Hospitalization)
  Sender: FDA-Public Use
  Company Number: None

PATIENT
  Age: 79 Year
  Sex: Male
  Weight: 91.2 kg

DRUGS (11)
  1. COUMADIN [Suspect]
     Indication: DEEP VEIN THROMBOSIS
     Dosage: ORAL
     Route: 048
  2. FUROSEMIDE [Concomitant]
  3. METOPROLOL TARTRATE [Concomitant]
  4. ALUMINIUM ACETATE [Concomitant]
  5. TERAZOSIN HCL [Concomitant]
  6. LORATADINE [Concomitant]
  7. CEPHALEXIN [Concomitant]
  8. POTASSIUM CHLORIDE [Concomitant]
  9. MULTI-VITAMIN [Concomitant]
  10. INSULIN NPH HUMAN/ NOVOLIN N [Concomitant]
  11. ASPIRIN [Concomitant]

REACTIONS (2)
  - GASTROINTESTINAL HAEMORRHAGE [None]
  - INTERNATIONAL NORMALISED RATIO INCREASED [None]
